FAERS Safety Report 11700959 (Version 1)
Quarter: 2015Q4

REPORT INFORMATION
  Report Type: Spontaneous
  Country: DE (occurrence: DE)
  Receive Date: 20151105
  Receipt Date: 20151105
  Transmission Date: 20160304
  Serious: Yes (Other)
  Sender: FDA-Public Use
  Company Number: DE-GE HEALTHCARE MEDICAL DIAGNOSTICS-OMPQ-PR-1510S-2956

PATIENT
  Age: 48 Year
  Sex: Male
  Weight: 83 kg

DRUGS (2)
  1. ACCUPAQUE [Suspect]
     Active Substance: IOHEXOL
     Indication: DIAGNOSTIC PROCEDURE
  2. ACCUPAQUE [Suspect]
     Active Substance: IOHEXOL
     Indication: PRODUCT USED FOR UNKNOWN INDICATION
     Route: 042
     Dates: start: 20151015, end: 20151015

REACTIONS (2)
  - Throat irritation [Recovered/Resolved]
  - Larynx irritation [Recovered/Resolved]

NARRATIVE: CASE EVENT DATE: 20151015
